FAERS Safety Report 4694529-9 (Version None)
Quarter: 2005Q2

REPORT INFORMATION
  Report Type: 
  Country: None (occurrence: None)
  Receive Date: 20050620
  Receipt Date: 20050527
  Transmission Date: 20051028
  Serious: Yes (Death, Hospitalization)
  Sender: FDA-Public Use
  Company Number: US-BRISTOL-MYERS SQUIBB COMPANY-12986022

PATIENT
  Age: 58 Year
  Sex: Female

DRUGS (4)
  1. CETUXIMAB [Suspect]
     Indication: NON-SMALL CELL LUNG CANCER
     Dosage: 1ST CETUXIMAB INFUSION ADMINISTERED 04-APR-2005. COURSE 2 ADMINISTERED 11-APR-2005(764 X 1/477 MG).
     Route: 042
     Dates: start: 20050523, end: 20050523
  2. CARBOPLATIN [Suspect]
     Indication: NON-SMALL CELL LUNG CANCER
     Dosage: 1ST CARBOPLATIN INFUSION ADMINISTERED ON 04-APR-2005 (720 MG).
     Route: 042
     Dates: start: 20050516, end: 20050516
  3. TAXOL [Suspect]
     Indication: NON-SMALL CELL LUNG CANCER
     Dosage: 1ST TAXOL INFUSION ADMINISTERED ON 04-APR-2005 (430 MG).
     Route: 042
     Dates: start: 20050516, end: 20050516
  4. COUMADIN [Suspect]
     Dates: start: 20050304

REACTIONS (1)
  - SUBDURAL HAEMATOMA [None]
